FAERS Safety Report 25911581 (Version 6)
Quarter: 2025Q4

REPORT INFORMATION
  Report Type: Report from Study
  Country: CA (occurrence: CA)
  Receive Date: 20251013
  Receipt Date: 20251223
  Transmission Date: 20260118
  Serious: Yes (Other)
  Sender: JOHNSON AND JOHNSON
  Company Number: CA-JNJFOC-20251007710

PATIENT
  Age: 72 Year
  Sex: Female
  Weight: 97.3 kg

DRUGS (2)
  1. SIMPONI [Suspect]
     Active Substance: GOLIMUMAB
     Indication: Psoriatic arthropathy
     Dosage: 4 NUMBER OF UNITS INVOLVED IN THIS COMPLAINT
     Route: 041
     Dates: start: 20250912
  2. SIMPONI [Suspect]
     Active Substance: GOLIMUMAB
     Indication: Crohn^s disease
     Dosage: 2MG/KG (200 MG) EVERY 8 WEEKS (DILUTED IN 100 ML OF NACL)
     Route: 041

REACTIONS (6)
  - Diverticulitis [Recovered/Resolved]
  - Fatigue [Recovering/Resolving]
  - Vision blurred [Recovering/Resolving]
  - Hyperthermia [Recovering/Resolving]
  - Abdominal pain [Recovering/Resolving]
  - Rash [Recovering/Resolving]

NARRATIVE: CASE EVENT DATE: 20250924
